FAERS Safety Report 6167812-8 (Version None)
Quarter: 2009Q2

REPORT INFORMATION
  Report Type: 
  Country: None (occurrence: None)
  Receive Date: 20090427
  Receipt Date: 20090420
  Transmission Date: 20091009
  Serious: Yes (Hospitalization)
  Sender: FDA-Public Use
  Company Number: US-JNJFOC-20090405000

PATIENT
  Age: 19 Year
  Sex: Male

DRUGS (3)
  1. RETIN-A MICRO [Suspect]
     Route: 061
  2. RETIN-A MICRO [Suspect]
     Indication: ACNE
     Route: 061
  3. ERYTHROMYCIN [Concomitant]
     Indication: ACNE
     Route: 065

REACTIONS (2)
  - DIPLOPIA [None]
  - HEADACHE [None]
